FAERS Safety Report 8375215-0 (Version None)
Quarter: 2012Q2

REPORT INFORMATION
  Report Type: 
  Country: None (occurrence: None)
  Receive Date: 20120522
  Receipt Date: 20120510
  Transmission Date: 20120825
  Serious: Yes (Other)
  Sender: FDA-Public Use
  Company Number: ES-BRISTOL-MYERS SQUIBB COMPANY-16597767

PATIENT
  Age: 58 Year
  Sex: Female

DRUGS (9)
  1. METFORMIN HCL [Suspect]
     Indication: TYPE 2 DIABETES MELLITUS
     Route: 048
  2. BETAMETHASONE [Suspect]
     Indication: SUDDEN HEARING LOSS
     Dosage: ONE SINGLE DOSE
     Route: 030
  3. INSULIN LISPRO [Concomitant]
     Indication: TYPE 2 DIABETES MELLITUS
     Dosage: BEFORE BREAKFAST, BETWEEN 6 AND 9 UNITS
  4. REPAGLINIDE [Concomitant]
     Indication: TYPE 2 DIABETES MELLITUS
     Route: 048
  5. BETAMETHASONE [Suspect]
     Indication: TINNITUS
     Dosage: ONE SINGLE DOSE
     Route: 030
  6. DEXAMETHASONE [Suspect]
     Indication: SUDDEN HEARING LOSS
     Dosage: ROUTE: INTRATYMPANIC,23MG/ML
  7. INSULIN DETEMIR [Concomitant]
     Indication: TYPE 2 DIABETES MELLITUS
     Dosage: BEFORE BEDTIME,INJ,36IU(13 MRNG, 23 NIGHT),23IU
  8. DEXAMETHASONE [Suspect]
     Indication: TINNITUS
     Dosage: ROUTE: INTRATYMPANIC,23MG/ML
  9. SITAGLIPTIN PHOSPHATE [Concomitant]
     Indication: TYPE 2 DIABETES MELLITUS
     Route: 048

REACTIONS (4)
  - DEAFNESS UNILATERAL [None]
  - NYSTAGMUS [None]
  - TINNITUS [None]
  - HYPERGLYCAEMIA [None]
